FAERS Safety Report 11338470 (Version 1)
Quarter: 2015Q3

REPORT INFORMATION
  Report Type: Spontaneous
  Country: US (occurrence: US)
  Receive Date: 20150803
  Receipt Date: 20150803
  Transmission Date: 20151125
  Serious: No
  Sender: FDA-Public Use
  Company Number: US-ELI_LILLY_AND_COMPANY-US200709000843

PATIENT
  Age: 7 Year
  Sex: Female
  Weight: 22.68 kg

DRUGS (4)
  1. STRATTERA [Suspect]
     Active Substance: ATOMOXETINE HYDROCHLORIDE
     Dosage: 18 MG, DAILY (1/D)
     Dates: start: 20070831, end: 20070904
  2. STRATTERA [Suspect]
     Active Substance: ATOMOXETINE HYDROCHLORIDE
     Indication: AUTISM SPECTRUM DISORDER
     Dosage: 10 MG, DAILY (1/D)
     Dates: start: 200708, end: 20070830
  3. CLONIDINE. [Concomitant]
     Active Substance: CLONIDINE
     Dosage: UNK, DAILY (1/D)
  4. STRATTERA [Suspect]
     Active Substance: ATOMOXETINE HYDROCHLORIDE
     Dosage: 5 MG, UNK
     Dates: start: 20070905

REACTIONS (3)
  - Obsessive-compulsive disorder [Recovering/Resolving]
  - Aggression [Recovering/Resolving]
  - Negativism [Recovering/Resolving]

NARRATIVE: CASE EVENT DATE: 20070831
